FAERS Safety Report 5907005-X (Version None)
Quarter: 2008Q4

REPORT INFORMATION
  Report Type: 
  Country: None (occurrence: None)
  Receive Date: 20081003
  Receipt Date: 20080924
  Transmission Date: 20090506
  Serious: Yes (Other)
  Sender: FDA-Public Use
  Company Number: US-PURDUE-USA_2008_0035122

PATIENT
  Sex: Male

DRUGS (2)
  1. OXYCONTIN [Suspect]
     Indication: DRUG ABUSE
     Dosage: UNK MG, UNK
  2. ALCOHOL                            /00002101/ [Suspect]
     Indication: DRUG ABUSE
     Dosage: UNK, UNK

REACTIONS (3)
  - AGGRESSION [None]
  - ALCOHOLISM [None]
  - DRUG DEPENDENCE [None]
